FAERS Safety Report 6278913-8 (Version None)
Quarter: 2009Q3

REPORT INFORMATION
  Report Type: 
  Country: None (occurrence: None)
  Receive Date: 20090723
  Receipt Date: 20090714
  Transmission Date: 20100115
  Serious: Yes (Hospitalization)
  Sender: FDA-Public Use
  Company Number: GB-RANBAXY-2009RR-25578

PATIENT
  Age: 76 Year
  Sex: Male

DRUGS (3)
  1. FRUSEMIDE [Suspect]
     Indication: CARDIAC FAILURE CONGESTIVE
     Dosage: 40 MG, UNK
     Route: 048
  2. RAMIPRIL [Suspect]
     Indication: CARDIAC FAILURE CONGESTIVE
     Dosage: 5 MG, UNK
     Route: 048
  3. IBUPROFEN [Suspect]
     Indication: CARDIAC FAILURE CONGESTIVE
     Route: 048

REACTIONS (2)
  - OFF LABEL USE [None]
  - RENAL FAILURE [None]
